FAERS Safety Report 8157530 (Version 3)
Quarter: 2013Q3

REPORT INFORMATION
  Report Type: Spontaneous
  Country: US (occurrence: US)
  Receive Date: 20110927
  Receipt Date: 20130711
  Transmission Date: 20140515
  Serious: No
  Sender: FDA-Public Use
  Company Number: US-ASTRAZENECA-2011SE25994

PATIENT
  Age: 51 Year
  Sex: Male
  Weight: 82.6 kg

DRUGS (11)
  1. SEROQUEL XR [Suspect]
     Indication: DEMENTIA
     Route: 048
  2. SEROQUEL XR [Suspect]
     Indication: BIPOLAR DISORDER
     Route: 048
  3. SEROQUEL XR [Suspect]
     Indication: DEMENTIA
     Route: 048
  4. SEROQUEL XR [Suspect]
     Indication: BIPOLAR DISORDER
     Route: 048
  5. SEROQUEL XR [Suspect]
     Indication: DEMENTIA
     Route: 048
  6. SEROQUEL XR [Suspect]
     Indication: BIPOLAR DISORDER
     Route: 048
  7. SEROQUEL XR [Suspect]
     Indication: DEMENTIA
     Route: 065
  8. SEROQUEL XR [Suspect]
     Indication: BIPOLAR DISORDER
     Route: 065
  9. DEPAKOTE [Concomitant]
     Indication: BIPOLAR DISORDER
  10. SYNTHROID [Concomitant]
     Indication: HYPOTHYROIDISM
  11. SYNTHROID [Concomitant]
     Indication: HYPOTHYROIDISM

REACTIONS (15)
  - Headache [Unknown]
  - Adverse event [Unknown]
  - Withdrawal syndrome [Unknown]
  - Insomnia [Unknown]
  - Feeling abnormal [Unknown]
  - Agitation [Unknown]
  - Activities of daily living impaired [Unknown]
  - Mental impairment [Unknown]
  - Disease recurrence [Unknown]
  - Fatigue [Unknown]
  - Irritability [Unknown]
  - Off label use [Unknown]
  - Drug prescribing error [Unknown]
  - Intentional drug misuse [Unknown]
  - Intentional drug misuse [Unknown]
